FAERS Safety Report 8255311-9 (Version None)
Quarter: 2012Q2

REPORT INFORMATION
  Report Type: 
  Country: None (occurrence: None)
  Receive Date: 20120403
  Receipt Date: 20120322
  Transmission Date: 20120825
  Serious: Yes (Hospitalization, Other)
  Sender: FDA-Public Use
  Company Number: DE-MYLANLABS-2011S1000469

PATIENT
  Age: 36 Year
  Sex: Male
  Weight: 65 kg

DRUGS (1)
  1. VALPROATE SODIUM [Suspect]
     Indication: PRODUCT USED FOR UNKNOWN INDICATION
     Dates: start: 20110105, end: 20110105

REACTIONS (10)
  - VOMITING [None]
  - BRADYPNOEA [None]
  - ACIDOSIS [None]
  - INTENTIONAL OVERDOSE [None]
  - TACHYCARDIA [None]
  - SOMNOLENCE [None]
  - HYPOTENSION [None]
  - SUICIDE ATTEMPT [None]
  - GASTROINTESTINAL SOUNDS ABNORMAL [None]
  - COMA [None]
